FAERS Safety Report 11847080 (Version 3)
Quarter: 2016Q1

REPORT INFORMATION
  Report Type: Spontaneous
  Country: US (occurrence: US)
  Receive Date: 20151217
  Receipt Date: 20160314
  Transmission Date: 20160526
  Serious: Yes (Hospitalization, Other)
  Sender: FDA-Public Use
  Company Number: US-PFIZER INC-2015448404

PATIENT
  Age: 70 Year
  Sex: Female

DRUGS (13)
  1. PREMARIN [Suspect]
     Active Substance: ESTROGENS, CONJUGATED
     Indication: MICTURITION URGENCY
     Dosage: 0.5 G, 2X/WEEK
  2. ATORVASTATIN [Concomitant]
     Active Substance: ATORVASTATIN
     Dosage: 10 MG, 1X/DAY
  3. ASCORBIC ACID. [Concomitant]
     Active Substance: ASCORBIC ACID
     Dosage: UNK, DAILY
  4. COQ10 [Concomitant]
     Active Substance: UBIDECARENONE
     Dosage: UNK, DAILY
  5. VITAMIN D3 [Concomitant]
     Active Substance: CHOLECALCIFEROL
     Dosage: UNK, DAILY
  6. MAGNESIUM [Concomitant]
     Active Substance: MAGNESIUM
     Dosage: UNK, DAILY
  7. FISH OIL [Concomitant]
     Active Substance: FISH OIL
     Dosage: UNK, DAILY
  8. ZINC [Concomitant]
     Active Substance: ZINC\ZINC CHLORIDE
     Dosage: UNK, DAILY
  9. HOMATROPINE/HYDROCODONE [Concomitant]
     Indication: COUGH
     Dosage: 5- 1.5 MG, UNK
  10. TRETINOIN. [Concomitant]
     Active Substance: TRETINOIN
     Dosage: 0.025 %, 1X/DAY (NIGHTLY)
  11. CYANOCOBALAMIN. [Concomitant]
     Active Substance: CYANOCOBALAMIN
     Dosage: 1000 MCG/ ML 2 X A MONTH INJECTION
  12. PREMARIN [Suspect]
     Active Substance: ESTROGENS, CONJUGATED
     Dosage: 10 MG, 2X/WEEK
     Dates: start: 201511
  13. B6 [Concomitant]
     Active Substance: PYRIDOXINE HYDROCHLORIDE
     Dosage: UNK, DAILY

REACTIONS (3)
  - Product use issue [Unknown]
  - Cataract [Not Recovered/Not Resolved]
  - Headache [Recovered/Resolved]

NARRATIVE: CASE EVENT DATE: 20160128
